FAERS Safety Report 6634373-6 (Version None)
Quarter: 2010Q1

REPORT INFORMATION
  Report Type: 
  Country: None (occurrence: None)
  Receive Date: 20100225
  Receipt Date: 20090203
  Transmission Date: 20100710
  Serious: Yes (Other)
  Sender: FDA-Public Use
  Company Number: DSA_33143_2009

PATIENT
  Sex: Female

DRUGS (1)
  1. VASOTEC [Suspect]
     Indication: DRUG USE FOR UNKNOWN INDICATION
     Dosage: (5 MG QD ORAL)
     Route: 048
     Dates: end: 20060201

REACTIONS (1)
  - ANGIOEDEMA [None]
